FAERS Safety Report 21472020 (Version 3)
Quarter: 2023Q1

REPORT INFORMATION
  Report Type: Spontaneous
  Country: US (occurrence: US)
  Receive Date: 20221018
  Receipt Date: 20230201
  Transmission Date: 20230418
  Serious: No
  Sender: FDA-Public Use
  Company Number: US-NOVARTISTESTPH-NVSC2022US234279

PATIENT
  Sex: Male

DRUGS (1)
  1. COSENTYX [Suspect]
     Active Substance: SECUKINUMAB
     Indication: Product used for unknown indication
     Dosage: 300 ML, QMO (150ML/PACK 2 SYRINGES)
     Route: 065

REACTIONS (3)
  - Device defective [Unknown]
  - Needle issue [Unknown]
  - Incorrect dose administered by device [Unknown]
